FAERS Safety Report 11468902 (Version 1)
Quarter: 2015Q3

REPORT INFORMATION
  Report Type: Spontaneous
  Country: US (occurrence: None)
  Receive Date: 20150828
  Receipt Date: 20150828
  Transmission Date: 20151125
  Serious: Yes (Other)
  Sender: FDA-Public Use
  Company Number: AMAG201500379

PATIENT
  Age: 54 Year
  Sex: Female
  Weight: 77.6 kg

DRUGS (3)
  1. HYDROCHLOROTHIAZIDE. [Concomitant]
     Active Substance: HYDROCHLOROTHIAZIDE
  2. FERAHEME [Suspect]
     Active Substance: FERUMOXYTOL NON-STOICHIOMETRIC MAGNETITE
     Indication: IRON DEFICIENCY ANAEMIA
     Route: 042
     Dates: start: 20150409, end: 20150409
  3. LASIX (FUROSEMDIE) [Concomitant]

REACTIONS (4)
  - Feeling abnormal [None]
  - Hypotension [None]
  - Unresponsive to stimuli [None]
  - Nervousness [None]

NARRATIVE: CASE EVENT DATE: 20150423
